FAERS Safety Report 9227717 (Version 1)
Quarter: 2013Q2

REPORT INFORMATION
  Report Type: Report from Study
  Country: US (occurrence: US)
  Receive Date: 20130412
  Receipt Date: 20130412
  Transmission Date: 20140414
  Serious: Yes (Death)
  Sender: FDA-Public Use
  Company Number: US-SANOFI-AVENTIS-2013SA037440

PATIENT
  Sex: 0

DRUGS (6)
  1. DOCETAXEL [Suspect]
     Indication: BREAST CANCER STAGE IV
     Dosage: 1 HOUR ON DAY 8
     Route: 042
  2. DOCETAXEL [Suspect]
     Indication: BREAST CANCER STAGE IV
     Dosage: 1 HOUR ON DAY 8
     Route: 042
  3. MK-0752 [Suspect]
     Indication: BREAST CANCER STAGE IV
     Dosage: DOSE LEVEL 1 ON DAY 1 TO 3
     Route: 048
  4. MK-0752 [Suspect]
     Indication: BREAST CANCER STAGE IV
     Dosage: DOSE LEVEL 1 ON DAY 1 TO 3
     Route: 048
  5. DEXAMETHASONE [Concomitant]
     Dosage: FOR 3 DOSES BEGINNING ON THE EVENING OF DAY 7
  6. PEGFILGRASTIM [Concomitant]

REACTIONS (3)
  - Disease progression [Fatal]
  - Pneumonitis [Fatal]
  - Breast cancer stage IV [None]
